FAERS Safety Report 24952735 (Version 1)
Quarter: 2025Q1

REPORT INFORMATION
  Report Type: Spontaneous
  Country: US (occurrence: US)
  Receive Date: 20250211
  Receipt Date: 20250211
  Transmission Date: 20250408
  Serious: Yes (Life-Threatening, Hospitalization, Other)
  Sender: AUROBINDO
  Company Number: US-MLMSERVICE-20250120-PI366687-00135-1

PATIENT
  Age: 25 Year
  Sex: Male

DRUGS (1)
  1. ERYTHROMYCIN ETHYLSUCCINATE [Suspect]
     Active Substance: ERYTHROMYCIN ETHYLSUCCINATE
     Indication: Product used for unknown indication
     Route: 065

REACTIONS (8)
  - Hyperphosphataemia [Unknown]
  - Metabolic acidosis [Unknown]
  - Anaemia [Recovering/Resolving]
  - Generalised oedema [Recovering/Resolving]
  - Hypocalcaemia [Recovering/Resolving]
  - Renal failure [Recovering/Resolving]
  - Rhabdomyolysis [Recovering/Resolving]
  - Prescription drug used without a prescription [Unknown]
